FAERS Safety Report 14092559 (Version 4)
Quarter: 2018Q1

REPORT INFORMATION
  Report Type: Spontaneous
  Country: GB (occurrence: GB)
  Receive Date: 20171016
  Receipt Date: 20180118
  Transmission Date: 20180508
  Serious: Yes (Hospitalization, Other)
  Sender: FDA-Public Use
  Company Number: GB-BRISTOL-MYERS SQUIBB COMPANY-BMS-2017-091438

PATIENT
  Age: 44 Year
  Sex: Male

DRUGS (4)
  1. AMLODIPINE [Concomitant]
     Active Substance: AMLODIPINE BESYLATE
     Indication: HYPERTENSION
     Dosage: UNK
     Route: 048
  2. YERVOY [Suspect]
     Active Substance: IPILIMUMAB
     Indication: METASTATIC MALIGNANT MELANOMA
     Dosage: 3 MG/KG, Q3WK
     Route: 042
     Dates: start: 20170816, end: 20170929
  3. OPDIVO [Suspect]
     Active Substance: NIVOLUMAB
     Indication: METASTATIC MALIGNANT MELANOMA
     Dosage: 1 MG/KG, Q3WK
     Route: 042
     Dates: start: 20170816, end: 20170929
  4. TELMISARTAN. [Concomitant]
     Active Substance: TELMISARTAN
     Indication: HYPERTENSION
     Dosage: UNK
     Route: 048

REACTIONS (4)
  - Seizure [Recovering/Resolving]
  - Cerebral haemorrhage [Recovering/Resolving]
  - Autoimmune colitis [Recovering/Resolving]
  - Metastatic neoplasm [Recovering/Resolving]

NARRATIVE: CASE EVENT DATE: 20170824
